FAERS Safety Report 10161199 (Version 2)
Quarter: 2014Q2

REPORT INFORMATION
  Report Type: Report from Study
  Country: US (occurrence: US)
  Receive Date: 20140508
  Receipt Date: 20140509
  Transmission Date: 20141212
  Serious: Yes (Hospitalization)
  Sender: FDA-Public Use
  Company Number: US-EISAI INC-AP356-00701-CLI-US

PATIENT
  Age: 46 Year
  Sex: Male

DRUGS (2)
  1. LORCASERIN HYDROCHLORIDE [Suspect]
     Indication: EX-TOBACCO USER
     Route: 048
     Dates: start: 20140331, end: 20140429
  2. METHYLPHENIDATE [Concomitant]

REACTIONS (1)
  - Bipolar disorder [Recovering/Resolving]
